FAERS Safety Report 18387188 (Version 1)
Quarter: 2020Q4

REPORT INFORMATION
  Report Type: Spontaneous
  Country: EG (occurrence: EG)
  Receive Date: 20201015
  Receipt Date: 20201015
  Transmission Date: 20210114
  Serious: Yes (Death)
  Sender: FDA-Public Use
  Company Number: NVSC2020EG276068

PATIENT

DRUGS (5)
  1. METHOTREXATE. [Suspect]
     Active Substance: METHOTREXATE
     Indication: PROPHYLAXIS AGAINST GRAFT VERSUS HOST DISEASE
     Dosage: 15 MG (DAY 2)
     Route: 065
  2. MYCOPHENOLATE MOFETIL. [Suspect]
     Active Substance: MYCOPHENOLATE MOFETIL
     Indication: PROPHYLAXIS AGAINST GRAFT VERSUS HOST DISEASE
     Dosage: 2-3 G, QD (FROM DAY PLUS 1 TILL DAY PLUS 30)
     Route: 065
  3. CYCLOSPORINE. [Suspect]
     Active Substance: CYCLOSPORINE
     Indication: PROPHYLAXIS AGAINST GRAFT VERSUS HOST DISEASE
     Dosage: 5 MG/KG (FROM DAY 3 TILL DAY PLUS 90)
     Route: 065
  4. METHOTREXATE. [Suspect]
     Active Substance: METHOTREXATE
     Dosage: 10 MG (DAY 4)
     Route: 065
  5. METHOTREXATE. [Suspect]
     Active Substance: METHOTREXATE
     Dosage: 10 MG (DAY 6)
     Route: 065

REACTIONS (2)
  - Cystitis haemorrhagic [Fatal]
  - Product use in unapproved indication [Unknown]
